FAERS Safety Report 21846401 (Version 1)
Quarter: 2023Q1

REPORT INFORMATION
  Report Type: Other
  Country: US (occurrence: None)
  Receive Date: 20230111
  Receipt Date: 20230111
  Transmission Date: 20230418
  Serious: No
  Sender: FDA-Public Use
  Company Number: US-ROCHE-3260986

PATIENT
  Age: 57 Year
  Sex: Female

DRUGS (1)
  1. OCREVUS [Suspect]
     Active Substance: OCRELIZUMAB
     Indication: Relapsing multiple sclerosis
     Dosage: DOS: 04/NOV/2021, 18/NOV/2021, 23/MAY/2022, 30/DEC/2022
     Route: 042

REACTIONS (1)
  - COVID-19 [Unknown]
